FAERS Safety Report 20605887 (Version 1)
Quarter: 2022Q1

REPORT INFORMATION
  Report Type: Spontaneous
  Country: JP (occurrence: JP)
  Receive Date: 20220317
  Receipt Date: 20220317
  Transmission Date: 20220424
  Serious: Yes (Other)
  Sender: FDA-Public Use
  Company Number: JP-ASTELLAS-2022JP004231

PATIENT
  Age: 33 Year
  Sex: Male

DRUGS (21)
  1. MICAFUNGIN [Suspect]
     Active Substance: MICAFUNGIN
     Indication: Antibiotic prophylaxis
     Dosage: 150 MG/DAY, UNKNOWN FREQ.
     Route: 042
  2. MICAFUNGIN [Suspect]
     Active Substance: MICAFUNGIN
     Indication: Candida infection
  3. MICAFUNGIN [Suspect]
     Active Substance: MICAFUNGIN
     Indication: Systemic candida
  4. ACLARUBICIN [Concomitant]
     Active Substance: ACLARUBICIN
     Indication: Acute myeloid leukaemia
     Dosage: UNK UNK, UNKNOWN FREQ.
     Route: 065
  5. CYTARABINE [Concomitant]
     Active Substance: CYTARABINE
     Indication: Acute myeloid leukaemia
     Dosage: UNK UNK, UNKNOWN FREQ.
     Route: 065
  6. CEFEPIME [Concomitant]
     Active Substance: CEFEPIME HYDROCHLORIDE
     Indication: Anal abscess
     Dosage: UNK UNK, UNKNOWN FREQ.
     Route: 065
  7. PIPERACILLIN SODIUM\TAZOBACTAM SODIUM [Concomitant]
     Active Substance: PIPERACILLIN SODIUM\TAZOBACTAM SODIUM
     Indication: Anal abscess
     Dosage: UNK UNK, UNKNOWN FREQ.
     Route: 065
  8. DAPTOMYCIN [Concomitant]
     Active Substance: DAPTOMYCIN
     Indication: Anal abscess
     Dosage: UNK UNK, UNKNOWN FREQ.
     Route: 065
  9. AMPHOTERICIN B [Concomitant]
     Active Substance: AMPHOTERICIN B
     Indication: Candida infection
     Dosage: 3.0 MG/KG/DAY, UNKNOWN FREQ.
     Route: 042
  10. AMPHOTERICIN B [Concomitant]
     Active Substance: AMPHOTERICIN B
     Indication: Systemic candida
     Dosage: 3.0 MG/KG/DAY, UNKNOWN FREQ.
     Route: 042
  11. AMPHOTERICIN B [Concomitant]
     Active Substance: AMPHOTERICIN B
     Dosage: 5.0 MG/KG/DAY, UNKNOWN FREQ., HIGH-DOSE, FOR 25 DAYS
     Route: 042
  12. CASPOFUNGIN [Concomitant]
     Active Substance: CASPOFUNGIN
     Indication: Candida infection
     Dosage: 50 MG/DAY, UNKNOWN FREQ.
     Route: 042
  13. CASPOFUNGIN [Concomitant]
     Active Substance: CASPOFUNGIN
     Indication: Systemic candida
  14. FLUCONAZOLE [Concomitant]
     Active Substance: FLUCONAZOLE
     Indication: Candida infection
     Dosage: 400 MG/DAY, UNKNOWN FREQ.
     Route: 048
  15. FLUCONAZOLE [Concomitant]
     Active Substance: FLUCONAZOLE
     Indication: Systemic candida
     Dosage: 400 MG/DAY, UNKNOWN FREQ.
     Route: 048
  16. FLUCONAZOLE [Concomitant]
     Active Substance: FLUCONAZOLE
     Dosage: 400 MG/DAY, UNKNOWN FREQ.
     Route: 048
  17. FLUCONAZOLE [Concomitant]
     Active Substance: FLUCONAZOLE
     Dosage: 400 MG/DAY, UNKNOWN FREQ.
     Route: 048
  18. VORICONAZOLE [Concomitant]
     Active Substance: VORICONAZOLE
     Indication: Candida infection
     Dosage: 200 MG/DAY, UNKNOWN FREQ.
     Route: 048
  19. VORICONAZOLE [Concomitant]
     Active Substance: VORICONAZOLE
     Indication: Systemic candida
     Dosage: 600 MG/DAY, UNKNOWN FREQ.
     Route: 048
  20. ITRACONAZOLE [Concomitant]
     Active Substance: ITRACONAZOLE
     Indication: Candida infection
     Dosage: 400 MG/DAY, UNKNOWN FREQ.
     Route: 048
  21. ITRACONAZOLE [Concomitant]
     Active Substance: ITRACONAZOLE
     Indication: Systemic candida

REACTIONS (2)
  - Candida infection [Unknown]
  - Systemic candida [Unknown]
